FAERS Safety Report 9394040 (Version 1)
Quarter: 2013Q3

REPORT INFORMATION
  Report Type: Spontaneous
  Country: DE (occurrence: HN)
  Receive Date: 20130710
  Receipt Date: 20130710
  Transmission Date: 20140515
  Serious: Yes (Hospitalization)
  Sender: FDA-Public Use
  Company Number: DE-ACTELION-A-US2013-85077

PATIENT
  Age: 60 Year
  Sex: Male
  Weight: 81 kg

DRUGS (4)
  1. VENTAVIS BAYER SCHERING [Suspect]
     Indication: PULMONARY HYPERTENSION
     Dosage: UNK UNK, BID
     Route: 055
     Dates: start: 20130521, end: 20130524
  2. VENTAVIS BAYER SCHERING [Suspect]
     Dosage: UNK UNK, BID
     Route: 055
     Dates: start: 20130527, end: 20130630
  3. DIGOXINE [Concomitant]
  4. VASTAREL [Concomitant]

REACTIONS (12)
  - Liver disorder [Unknown]
  - Disorientation [Unknown]
  - Blood bilirubin increased [Unknown]
  - Abdominal pain [Unknown]
  - Pneumonia [Unknown]
  - Lung infection [Unknown]
  - Oral pain [Unknown]
  - Rhinorrhoea [Unknown]
  - Dry mouth [Unknown]
  - Nasal dryness [Unknown]
  - Chest pain [Unknown]
  - Dysgeusia [Unknown]
